FAERS Safety Report 7732635-2 (Version None)
Quarter: 2011Q3

REPORT INFORMATION
  Report Type: 
  Country: None (occurrence: None)
  Receive Date: 20110907
  Receipt Date: 20110824
  Transmission Date: 20111222
  Serious: Yes (Hospitalization)
  Sender: FDA-Public Use
  Company Number: PL-BRISTOL-MYERS SQUIBB COMPANY-15564131

PATIENT
  Age: 22 Year
  Sex: Female

DRUGS (3)
  1. ARIPIPRAZOLE [Suspect]
     Indication: SCHIZOPHRENIA
     Route: 048
     Dates: start: 20101124, end: 20110215
  2. ARIPIPRAZOLE [Suspect]
     Indication: SCHIZOPHRENIA
     Dosage: TOTAL OF 3 IM DEPOT INJ.
     Route: 030
     Dates: start: 20101124, end: 20110215
  3. BLINDED: PLACEBO [Suspect]
     Indication: SCHIZOPHRENIA
     Dates: start: 20101114, end: 20110215

REACTIONS (1)
  - PSYCHOTIC DISORDER [None]
